FAERS Safety Report 4341193-4 (Version None)
Quarter: 2004Q2

REPORT INFORMATION
  Report Type: 
  Country: None (occurrence: None)
  Receive Date: 20040419
  Receipt Date: 20040415
  Transmission Date: 20050107
  Serious: Yes (Life-Threatening)
  Sender: FDA-Public Use
  Company Number: US-BRISTOL-MYERS SQUIBB COMPANY-12562054

PATIENT
  Age: 48 Year
  Sex: Male

DRUGS (2)
  1. CETUXIMAB [Suspect]
     Indication: COLORECTAL CANCER
     Dosage: THERAPY INITIATED ON 20-AUG-2003
     Route: 042
     Dates: start: 20040414, end: 20040414
  2. IRINOTECAN [Suspect]
     Indication: COLORECTAL CANCER
     Dosage: THERAPY INITIATED ON 20-AUG-2003
     Route: 042
     Dates: start: 20040414, end: 20040414

REACTIONS (1)
  - BLOOD MAGNESIUM DECREASED [None]
